FAERS Safety Report 7511976-8 (Version None)
Quarter: 2011Q2

REPORT INFORMATION
  Report Type: 
  Country: None (occurrence: None)
  Receive Date: 20110531
  Receipt Date: 20110518
  Transmission Date: 20111010
  Serious: Yes (Hospitalization)
  Sender: FDA-Public Use
  Company Number: PHHY2011BR43892

PATIENT
  Sex: Female

DRUGS (4)
  1. FORMOTEROL FUMARATE [Suspect]
     Dosage: 1 INHALATION WITH EVERY ACTIVE INGREDIENT ON MORNING AND NIGHT
  2. DILTIAZEM [Concomitant]
     Dosage: UNK
  3. SIMVASTATIN [Concomitant]
     Dosage: UNK
  4. ANCORON [Concomitant]
     Dosage: UNK

REACTIONS (5)
  - EMOTIONAL DISORDER [None]
  - PLEURAL EFFUSION [None]
  - WHEEZING [None]
  - OXYGEN SATURATION DECREASED [None]
  - LUNG DISORDER [None]
